FAERS Safety Report 21364940 (Version 1)
Quarter: 2022Q3

REPORT INFORMATION
  Report Type: Spontaneous
  Country: IT (occurrence: IT)
  Receive Date: 20220922
  Receipt Date: 20220922
  Transmission Date: 20221027
  Serious: Yes (Hospitalization)
  Sender: FDA-Public Use
  Company Number: None

PATIENT
  Sex: Female

DRUGS (4)
  1. QUETIAPINE [Suspect]
     Active Substance: QUETIAPINE
     Indication: Intentional overdose
     Dosage: 25 MG
     Route: 048
     Dates: start: 20220727, end: 20220727
  2. RIVOTRIL [Suspect]
     Active Substance: CLONAZEPAM
     Indication: Intentional overdose
     Dosage: 0.5 MG
     Route: 048
     Dates: start: 20220727, end: 20220727
  3. RAMIPRIL [Suspect]
     Active Substance: RAMIPRIL
     Indication: Intentional overdose
     Dosage: 100 MG
     Route: 048
     Dates: start: 20220727, end: 20220727
  4. VALPROATE SODIUM [Suspect]
     Active Substance: VALPROATE SODIUM
     Indication: Intentional overdose
     Dosage: 300 MG
     Route: 048
     Dates: start: 20220727, end: 20220727

REACTIONS (2)
  - Sopor [Not Recovered/Not Resolved]
  - Intentional overdose [Not Recovered/Not Resolved]

NARRATIVE: CASE EVENT DATE: 20220727
